FAERS Safety Report 17173851 (Version 1)
Quarter: 2019Q4

REPORT INFORMATION
  Report Type: Spontaneous
  Country: US (occurrence: US)
  Receive Date: 20191219
  Receipt Date: 20191219
  Transmission Date: 20200122
  Serious: No
  Sender: FDA-Public Use
  Company Number: US-PFIZER INC-2019548287

PATIENT
  Age: 38 Year
  Sex: Female
  Weight: 104.31 kg

DRUGS (2)
  1. ZYVOX [Concomitant]
     Active Substance: LINEZOLID
     Dosage: UNK
     Route: 042
  2. VANCOMYCIN HCL [Suspect]
     Active Substance: VANCOMYCIN HYDROCHLORIDE
     Dosage: UNK
     Route: 042

REACTIONS (1)
  - Drug ineffective [Unknown]
